FAERS Safety Report 12507570 (Version 1)
Quarter: 2016Q2

REPORT INFORMATION
  Report Type: Spontaneous
  Country: US (occurrence: None)
  Receive Date: 20160628
  Receipt Date: 20160628
  Transmission Date: 20160815
  Serious: No
  Sender: FDA-Public Use
  Company Number: None

PATIENT
  Age: 70 Year
  Sex: Female

DRUGS (1)
  1. REPATHA [Suspect]
     Active Substance: EVOLOCUMAB
     Indication: HYPERLIPIDAEMIA
     Route: 058
     Dates: start: 20160504

REACTIONS (6)
  - Abdominal distension [None]
  - Vomiting [None]
  - Diarrhoea [None]
  - Blood glucose increased [None]
  - Peripheral swelling [None]
  - Pollakiuria [None]

NARRATIVE: CASE EVENT DATE: 20160504
